FAERS Safety Report 4828540-1 (Version None)
Quarter: 2005Q4

REPORT INFORMATION
  Report Type: 
  Country: None (occurrence: None)
  Receive Date: 20051110
  Receipt Date: 20051031
  Transmission Date: 20060501
  Serious: Yes (Hospitalization, Other)
  Sender: FDA-Public Use
  Company Number: 2004009355

PATIENT
  Sex: Male
  Weight: 89.3586 kg

DRUGS (16)
  1. NEURONTIN [Suspect]
     Indication: ANXIETY
     Dosage: 1800 MG (600 MG, 3 IN 1 D), ORAL
     Route: 048
     Dates: start: 19980301
  2. NEURONTIN [Suspect]
     Indication: BIPOLAR DISORDER
     Dosage: 1800 MG (600 MG, 3 IN 1 D), ORAL
     Route: 048
     Dates: start: 19980301
  3. LIPITOR [Suspect]
     Indication: BLOOD CHOLESTEROL
     Dosage: 20 MG (20 MG, 1 IN 1 D), ORAL
     Route: 048
     Dates: end: 20050301
  4. LITHIUM CARBONATE [Suspect]
     Indication: ILL-DEFINED DISORDER
  5. NAPROXEN [Suspect]
     Indication: FACIAL PAIN
  6. NAPROXEN [Suspect]
     Indication: PAIN IN JAW
  7. ZOLOFT [Suspect]
     Indication: BIPOLAR DISORDER
     Dosage: 50 MG (50 MG, DAILY  INTERVAL: EVERY DAY)
  8. ZOLOFT [Suspect]
     Indication: DEPRESSION
     Dosage: 50 MG (50 MG, DAILY  INTERVAL: EVERY DAY)
  9. AMOXICILLIN [Suspect]
     Indication: NASOPHARYNGITIS
     Dosage: 1000 MG (2 IN 1 D)
     Dates: start: 20040101
  10. ALL OTHER THERAPEUTIC PRODUCTS (ALL OTHER THERAPEUTIC PRODUCTS) [Concomitant]
  11. LEVOXYL [Concomitant]
  12. VITAMINS (VITAMINS) [Concomitant]
  13. TIAZAC [Concomitant]
  14. DEPAKOTE [Concomitant]
  15. VIOXX [Concomitant]
  16. SERZONE [Concomitant]

REACTIONS (44)
  - ABDOMINAL INJURY [None]
  - ABDOMINAL PAIN [None]
  - ACCIDENT [None]
  - AGITATION [None]
  - ANGER [None]
  - BLOOD CHOLESTEROL INCREASED [None]
  - CHEST PAIN [None]
  - CONDITION AGGRAVATED [None]
  - CONTUSION [None]
  - DIFFICULTY IN WALKING [None]
  - DISORIENTATION [None]
  - DIZZINESS [None]
  - DRUG INEFFECTIVE [None]
  - DRUG INTOLERANCE [None]
  - ERECTILE DYSFUNCTION [None]
  - FACIAL PAIN [None]
  - FACTITIOUS DISORDER [None]
  - FEELING COLD [None]
  - GASTROOESOPHAGEAL REFLUX DISEASE [None]
  - GINGIVAL DISORDER [None]
  - GLOSSODYNIA [None]
  - HOSTILITY [None]
  - HYPERSOMNIA [None]
  - HYPOREFLEXIA [None]
  - IMPAIRED HEALING [None]
  - INCORRECT DOSE ADMINISTERED [None]
  - INJURY [None]
  - IRRITABILITY [None]
  - LIMB INJURY [None]
  - LOSS OF PROPRIOCEPTION [None]
  - MOBILITY DECREASED [None]
  - MYALGIA [None]
  - NECK PAIN [None]
  - OESOPHAGEAL SPASM [None]
  - PAIN [None]
  - PAIN IN JAW [None]
  - SEDATION [None]
  - SEXUAL DYSFUNCTION [None]
  - SLEEP DISORDER [None]
  - SOMNOLENCE [None]
  - THINKING ABNORMAL [None]
  - TREATMENT NONCOMPLIANCE [None]
  - TREMOR [None]
  - VERTIGO [None]
